FAERS Safety Report 5709330-4 (Version None)
Quarter: 2008Q2

REPORT INFORMATION
  Report Type: 
  Country: None (occurrence: None)
  Receive Date: 20080417
  Receipt Date: 20080417
  Transmission Date: 20081010
  Serious: Yes (Other)
  Sender: FDA-Public Use
  Company Number: None

PATIENT
  Age: 66 Year
  Sex: Female
  Weight: 69.4003 kg

DRUGS (2)
  1. ZOLPIDEM [Suspect]
     Indication: SOMNOLENCE
     Dosage: 10 MG
  2. CLONAZEPAM [Suspect]
     Indication: SOMNOLENCE
     Dosage: 0.5

REACTIONS (5)
  - ECONOMIC PROBLEM [None]
  - FALL [None]
  - FEELING DRUNK [None]
  - NIGHTMARE [None]
  - PHARMACEUTICAL PRODUCT COMPLAINT [None]
